FAERS Safety Report 9684546 (Version 4)
Quarter: 2013Q4

REPORT INFORMATION
  Report Type: Spontaneous
  Country: US (occurrence: US)
  Receive Date: 20131112
  Receipt Date: 20131126
  Transmission Date: 20140711
  Serious: Yes (Other)
  Sender: FDA-Public Use
  Company Number: US-GILEAD-2013-0085728

PATIENT
  Sex: Female

DRUGS (2)
  1. LETAIRIS [Suspect]
     Indication: PULMONARY ARTERIAL HYPERTENSION
     Dosage: 10 MG, QD
     Dates: start: 20101227
  2. LETAIRIS [Suspect]
     Indication: SCLERODERMA

REACTIONS (8)
  - Loss of consciousness [Unknown]
  - Cardiac pacemaker insertion [Unknown]
  - Syncope [Unknown]
  - Heart rate irregular [Unknown]
  - Fluid retention [Unknown]
  - Fatigue [Unknown]
  - Dyspnoea [Unknown]
  - Dizziness [Unknown]
